FAERS Safety Report 11727385 (Version 1)
Quarter: 2015Q4

REPORT INFORMATION
  Report Type: Spontaneous
  Country: JP (occurrence: JP)
  Receive Date: 20151112
  Receipt Date: 20151112
  Transmission Date: 20160304
  Serious: Yes (Other)
  Sender: FDA-Public Use
  Company Number: JP-GLAXOSMITHKLINE-JP2015JPN159518

PATIENT
  Age: 73 Year
  Sex: Male
  Weight: 70 kg

DRUGS (43)
  1. PROPETO [Concomitant]
     Indication: HERPES ZOSTER
     Dosage: UNK
     Dates: start: 20141209, end: 20150105
  2. MOHRUS TAPE [Concomitant]
     Active Substance: KETOPROFEN
     Indication: BACK PAIN
  3. MOHRUS TAPE L [Concomitant]
     Indication: PAIN IN EXTREMITY
     Dosage: 40 MG, QD
     Dates: start: 20150202
  4. PITAVASTATIN CALCIUM [Concomitant]
     Active Substance: PITAVASTATIN CALCIUM
     Indication: CORONARY ARTERY STENOSIS
     Dosage: 4 MG, QD
     Dates: start: 20150310
  5. PRIMPERAN [Concomitant]
     Active Substance: METOCLOPRAMIDE HYDROCHLORIDE
     Dosage: 2 ML, BID
     Dates: start: 20150311, end: 20150311
  6. NICARDIPINE HYDROCHLORIDE. [Concomitant]
     Active Substance: NICARDIPINE HYDROCHLORIDE
     Dosage: 25 MG, QD
     Dates: start: 20150312, end: 20150312
  7. NITOROL [Concomitant]
     Active Substance: ISOSORBIDE DINITRATE
     Indication: CATHETERISATION CARDIAC
     Dosage: 5 MG, QD
     Dates: start: 20150310, end: 20150310
  8. NEGMIN [Concomitant]
     Indication: CATHETERISATION CARDIAC
     Dosage: UNK, QD
     Dates: start: 20150310, end: 20150310
  9. MOHRUS TAPE [Concomitant]
     Active Substance: KETOPROFEN
     Indication: PAIN IN EXTREMITY
     Dosage: 20 MG, QD
     Dates: start: 20141222, end: 20150202
  10. BAYASPIRIN [Concomitant]
     Active Substance: ASPIRIN
     Indication: THROMBOSIS PROPHYLAXIS
  11. UNKNOWN DRUG [Concomitant]
     Active Substance: UNSPECIFIED INGREDIENT
     Indication: EMBOLIC CEREBRAL INFARCTION
     Dosage: 115 MG, QD
     Dates: start: 20150310, end: 20150318
  12. PRIMPERAN [Concomitant]
     Active Substance: METOCLOPRAMIDE HYDROCHLORIDE
     Indication: NAUSEA
     Dosage: 2 ML, QD
     Dates: start: 20150310, end: 20150310
  13. LACTEC [Concomitant]
     Active Substance: CALCIUM CHLORIDE ANHYDROUS\POTASSIUM CHLORIDE\SODIUM CHLORIDE\SODIUM LACTATE
     Dosage: 500 ML, QD
     Dates: start: 20150310, end: 20150311
  14. UNKNOWN DRUG [Concomitant]
     Active Substance: UNSPECIFIED INGREDIENT
     Dosage: 115 MG, QD
     Dates: start: 20150410
  15. EDARAVONE [Concomitant]
     Active Substance: EDARAVONE
     Dosage: 100 ML, BID
     Dates: start: 20150311, end: 20150311
  16. SAXIZON [Concomitant]
     Active Substance: HYDROCORTISONE SODIUM SUCCINATE
     Indication: CONTRAST MEDIA ALLERGY
     Dosage: 25 MG, QD
     Dates: start: 20150310, end: 20150310
  17. KN NO.3 [Concomitant]
     Active Substance: DEXTROSE\POTASSIUM CHLORIDE\SODIUM CHLORIDE\SODIUM LACTATE
     Indication: PROPHYLAXIS AGAINST DEHYDRATION
     Dosage: 500 ML, QD
     Dates: start: 20150307, end: 20150310
  18. MUCOSTA [Concomitant]
     Active Substance: REBAMIPIDE
     Indication: HERPES ZOSTER
     Dosage: 100 MG, TID
     Dates: start: 20141209, end: 20141214
  19. MUCOSTA [Concomitant]
     Active Substance: REBAMIPIDE
     Dosage: 100 MG, PRN
     Dates: start: 20141214, end: 20150105
  20. OZAGREL NA [Concomitant]
     Indication: EMBOLIC CEREBRAL INFARCTION
     Dosage: 80 MG, QD
     Dates: start: 20150310, end: 20150310
  21. VEEN-F [Concomitant]
     Indication: PROPHYLAXIS AGAINST DEHYDRATION
     Dosage: 500 ML, QD
     Dates: start: 20150307, end: 20150307
  22. XALATAN [Concomitant]
     Active Substance: LATANOPROST
     Indication: GLAUCOMA
     Dosage: UNK, QD
  23. AZOPT [Concomitant]
     Active Substance: BRINZOLAMIDE
     Indication: GLAUCOMA
     Dosage: UNK, BID
  24. MOHRUS TAPE L [Concomitant]
     Indication: BACK PAIN
  25. BAYASPIRIN [Concomitant]
     Active Substance: ASPIRIN
     Indication: CORONARY ARTERY STENOSIS
     Dosage: 100 MG, QD
     Dates: start: 20150206, end: 20150220
  26. PRIMPERAN [Concomitant]
     Active Substance: METOCLOPRAMIDE HYDROCHLORIDE
     Indication: VOMITING
     Dosage: 2 ML, QD
     Dates: start: 20150307, end: 20150307
  27. KN NO.3 [Concomitant]
     Active Substance: DEXTROSE\POTASSIUM CHLORIDE\SODIUM CHLORIDE\SODIUM LACTATE
     Dosage: 500 ML, BID
     Dates: start: 20150311, end: 20150311
  28. XYLOCAINE [Concomitant]
     Active Substance: LIDOCAINE HYDROCHLORIDE
     Indication: CATHETERISATION CARDIAC
     Dosage: UNK, QD
     Dates: start: 20150310, end: 20150310
  29. LOXONIN [Concomitant]
     Active Substance: LOXOPROFEN SODIUM
     Indication: HERPES ZOSTER
     Dosage: 60 MG, TID
     Dates: start: 20141209, end: 20141214
  30. LOXONIN [Concomitant]
     Active Substance: LOXOPROFEN SODIUM
     Dosage: 60 MG, PRN
     Dates: start: 20141214, end: 20150105
  31. METHYCOBAL [Concomitant]
     Active Substance: METHYLCOBALAMIN
     Indication: NEURALGIA
     Dosage: 500 ?G, TID
  32. NERISONA [Concomitant]
     Active Substance: DIFLUCORTOLONE VALERATE
     Indication: ECZEMA
     Dosage: UNK
     Dates: start: 20150202, end: 20150309
  33. MOHRUS TAPE L [Concomitant]
     Indication: CONTUSION
  34. OZAGREL NA [Concomitant]
     Dosage: 80 MG, BID
     Dates: start: 20150311, end: 20150314
  35. NICARDIPINE HYDROCHLORIDE. [Concomitant]
     Active Substance: NICARDIPINE HYDROCHLORIDE
     Indication: EMBOLIC CEREBRAL INFARCTION
     Dosage: 25 MG, QD
     Dates: start: 20150310, end: 20150310
  36. OMNIPAQUE 350 [Concomitant]
     Indication: CATHETERISATION CARDIAC
     Dosage: 50 ML, QD
     Dates: start: 20150310, end: 20150310
  37. HEPARIN [Concomitant]
     Active Substance: HEPARIN SODIUM
     Indication: CATHETERISATION CARDIAC
     Dosage: 6 ML, QD
     Dates: start: 20150310, end: 20150310
  38. VALTREX [Suspect]
     Active Substance: VALACYCLOVIR HYDROCHLORIDE
     Indication: HERPES ZOSTER
     Dosage: UNK
     Route: 048
     Dates: start: 20141209
  39. SELTOUCH [Concomitant]
     Active Substance: FELBINAC
     Indication: BACK PAIN
     Dosage: 70 MG, QD
     Dates: start: 20141209, end: 20141222
  40. SHAKUYAKUKANZOTO [Concomitant]
     Active Substance: HERBALS
     Indication: NEURALGIA
     Dosage: 2.5 G, TID
  41. NITROPEN [Concomitant]
     Active Substance: NITROGLYCERIN
     Indication: CORONARY ARTERY STENOSIS
     Dosage: UNK
     Dates: start: 20150206, end: 20150220
  42. EDARAVONE [Concomitant]
     Active Substance: EDARAVONE
     Indication: EMBOLIC CEREBRAL INFARCTION
     Dosage: 100 ML, QD
     Dates: start: 20150310, end: 20150310
  43. NICARDIPINE HYDROCHLORIDE. [Concomitant]
     Active Substance: NICARDIPINE HYDROCHLORIDE
     Indication: HYPERTENSION
     Dosage: 25 MG, BID
     Dates: start: 20150311, end: 20150311

REACTIONS (18)
  - Eczema [Recovered/Resolved]
  - Incontinence [Recovered/Resolved]
  - Peripheral coldness [Recovered/Resolved]
  - Chest pain [Recovered/Resolved]
  - Pain in extremity [Recovered/Resolved]
  - Hemiplegia [Recovering/Resolving]
  - Vomiting [Recovered/Resolved]
  - Loss of consciousness [Recovered/Resolved]
  - Contusion [Recovered/Resolved]
  - Nausea [Recovered/Resolved]
  - Embolic cerebral infarction [Recovered/Resolved with Sequelae]
  - Nausea [Recovered/Resolved]
  - Aortic dissection [Not Recovered/Not Resolved]
  - Depressed level of consciousness [Recovered/Resolved]
  - Nausea [Recovered/Resolved]
  - Fall [Unknown]
  - Headache [Recovered/Resolved]
  - Vomiting [Recovered/Resolved]

NARRATIVE: CASE EVENT DATE: 20141222
